FAERS Safety Report 11093988 (Version 1)
Quarter: 2015Q2

REPORT INFORMATION
  Report Type: Spontaneous
  Country: AU (occurrence: AU)
  Receive Date: 20150506
  Receipt Date: 20150506
  Transmission Date: 20150821
  Serious: Yes (Other)
  Sender: FDA-Public Use
  Company Number: AU-JNJFOC-20150416833

PATIENT
  Age: 53 Year
  Sex: Male
  Weight: 66 kg

DRUGS (8)
  1. OLYSIO [Suspect]
     Active Substance: SIMEPREVIR
     Indication: HEPATITIS C
     Route: 048
     Dates: start: 20150324, end: 20150414
  2. PEGYLATED INTERFERON NOS [Suspect]
     Active Substance: PEGINTERFERON ALFA-2A OR PEGINTERFERON ALFA-2B OR PEGINTERFERON BETA-1A OR PEGINTERFERON LAMBDA-1A
     Indication: HEPATITIS C
     Route: 058
     Dates: start: 20150324, end: 20150407
  3. MS CONTIN [Concomitant]
     Active Substance: MORPHINE SULFATE
  4. NARATRIPTAN [Concomitant]
     Active Substance: NARATRIPTAN HYDROCHLORIDE
     Dosage: PRN (AS REQUIRED)
  5. SANDOMIGRAN [Concomitant]
     Active Substance: PIZOTYLINE
  6. QUININE [Concomitant]
     Active Substance: QUININE
     Dosage: NOCTE
  7. PANADOL [Concomitant]
     Active Substance: ACETAMINOPHEN
     Dosage: PRN (AS REQUIRED)
  8. RIBAVIRIN. [Suspect]
     Active Substance: RIBAVIRIN
     Indication: HEPATITIS C
     Route: 048
     Dates: start: 20150324, end: 20150414

REACTIONS (5)
  - Tremor [Recovered/Resolved]
  - Blunted affect [Recovered/Resolved]
  - Neutropenia [Unknown]
  - Apathy [Recovering/Resolving]
  - Back pain [Recovering/Resolving]

NARRATIVE: CASE EVENT DATE: 20150324
